FAERS Safety Report 17342694 (Version 1)
Quarter: 2020Q1

REPORT INFORMATION
  Report Type: Spontaneous
  Country: DE (occurrence: DE)
  Receive Date: 20200129
  Receipt Date: 20200129
  Transmission Date: 20200409
  Serious: Yes (Other)
  Sender: FDA-Public Use
  Company Number: DE-MYLANLABS-2020M1009978

PATIENT
  Age: 82 Year
  Sex: Female
  Weight: 63 kg

DRUGS (5)
  1. HCT DEXCEL [Concomitant]
     Active Substance: HYDROCHLOROTHIAZIDE
     Dosage: UNK
     Route: 048
  2. LORAZEPAM DURA 2,5 MG TABLETTEN [Suspect]
     Active Substance: LORAZEPAM
     Indication: PRODUCT USED FOR UNKNOWN INDICATION
     Dosage: 2.5 MILLIGRAM, QD
     Route: 048
     Dates: start: 20191023, end: 20191028
  3. RAMILICH [Concomitant]
     Active Substance: RAMIPRIL
     Dosage: UNK
     Route: 048
  4. XARELTO [Concomitant]
     Active Substance: RIVAROXABAN
     Dosage: UNK
     Route: 048
  5. BISOPROLOL RATIOPHARM [Concomitant]
     Active Substance: BISOPROLOL
     Dosage: UNK
     Route: 048

REACTIONS (4)
  - Blood pressure increased [Unknown]
  - Movement disorder [Recovering/Resolving]
  - Somnolence [Recovering/Resolving]
  - Product substitution issue [Unknown]

NARRATIVE: CASE EVENT DATE: 201910
